FAERS Safety Report 5660867-6 (Version None)
Quarter: 2008Q1

REPORT INFORMATION
  Report Type: 
  Country: None (occurrence: None)
  Receive Date: 20080311
  Receipt Date: 20080304
  Transmission Date: 20080703
  Serious: No
  Sender: FDA-Public Use
  Company Number: US-BAXTER-2008BH001959

PATIENT
  Age: 26 Year
  Sex: Female

DRUGS (1)
  1. HEPARIN SODIUM [Suspect]
     Indication: DRUG USE FOR UNKNOWN INDICATION
     Dosage: DOSE UNIT:UNKNOWN
     Route: 065

REACTIONS (5)
  - ANOREXIA [None]
  - MALAISE [None]
  - MICTURITION FREQUENCY DECREASED [None]
  - PARAESTHESIA [None]
  - WEIGHT DECREASED [None]
